FAERS Safety Report 25536746 (Version 2)
Quarter: 2025Q3

REPORT INFORMATION
  Report Type: Spontaneous
  Country: EU (occurrence: EU)
  Receive Date: 20250710
  Receipt Date: 20250922
  Transmission Date: 20251020
  Serious: Yes (Hospitalization, Other)
  Sender: CIPLA
  Company Number: EU-BAYER-2025A032395

PATIENT

DRUGS (1)
  1. RIVAROXABAN [Suspect]
     Active Substance: RIVAROXABAN
     Indication: Atrial fibrillation
     Route: 048

REACTIONS (4)
  - Paraplegia [Recovered/Resolved]
  - Extradural haematoma [Recovered/Resolved]
  - Hypoaesthesia [Recovering/Resolving]
  - Asthenia [Recovering/Resolving]
